FAERS Safety Report 11957163 (Version 5)
Quarter: 2016Q3

REPORT INFORMATION
  Report Type: Report from Study
  Country: SE (occurrence: SE)
  Receive Date: 20160126
  Receipt Date: 20160706
  Transmission Date: 20161109
  Serious: Yes (Other)
  Sender: FDA-Public Use
  Company Number: SE-EMD SERONO-8063175

PATIENT
  Age: 13 Year
  Sex: Male
  Weight: 50 kg

DRUGS (3)
  1. SAIZEN [Suspect]
     Active Substance: SOMATROPIN
     Indication: PRODUCT USED FOR UNKNOWN INDICATION
     Dosage: LESS THAN 0.033 MG/KG/24 H
     Dates: start: 20110614
  2. SAIZEN [Suspect]
     Active Substance: SOMATROPIN
  3. LEVAXIN [Concomitant]
     Active Substance: LEVOTHYROXINE SODIUM
     Indication: HYPOTHYROIDISM
     Dosage: LESS THAN 0.033MG/KG/DAY
     Route: 048
     Dates: start: 20120507

REACTIONS (1)
  - Scoliosis [Recovered/Resolved]

NARRATIVE: CASE EVENT DATE: 20140305
